FAERS Safety Report 21153607 (Version 2)
Quarter: 2023Q1

REPORT INFORMATION
  Report Type: Spontaneous
  Country: JP (occurrence: JP)
  Receive Date: 20220731
  Receipt Date: 20230227
  Transmission Date: 20230418
  Serious: Yes (Other)
  Sender: FDA-Public Use
  Company Number: JP-LUNDBECK-DKLU3050639

PATIENT
  Age: 74 Year
  Sex: Male

DRUGS (1)
  1. DROXIDOPA [Suspect]
     Active Substance: DROXIDOPA
     Indication: Product used for unknown indication
     Route: 048

REACTIONS (6)
  - Hallucination [Recovering/Resolving]
  - Irritability [Recovering/Resolving]
  - Nightmare [Recovering/Resolving]
  - Abnormal behaviour [Recovering/Resolving]
  - Irregular sleep wake rhythm disorder [Recovering/Resolving]
  - Off label use [Unknown]

NARRATIVE: CASE EVENT DATE: 20220501
